FAERS Safety Report 6929832-2 (Version None)
Quarter: 2010Q3

REPORT INFORMATION
  Report Type: 
  Country: None (occurrence: None)
  Receive Date: 20100817
  Receipt Date: 20100817
  Transmission Date: 20110219
  Serious: Yes (Disabling)
  Sender: FDA-Public Use
  Company Number: None

PATIENT
  Sex: Male
  Weight: 86.1834 kg

DRUGS (4)
  1. CIPRO [Suspect]
     Indication: CHRONIC SINUSITIS
     Dosage: 500 MG B.I.D ORAL
     Route: 048
  2. CIPRO [Suspect]
     Indication: CONDITION AGGRAVATED
     Dosage: 500 MG B.I.D ORAL
     Route: 048
  3. CIPRO [Suspect]
     Indication: CHRONIC SINUSITIS
     Dosage: 500 MG B.I.D. ORAL MULTIPLE SHORTER COURSES
     Route: 048
  4. CIPRO [Suspect]
     Indication: CONDITION AGGRAVATED
     Dosage: 500 MG B.I.D. ORAL MULTIPLE SHORTER COURSES
     Route: 048

REACTIONS (4)
  - DRUG ADMINISTRATION ERROR [None]
  - DRUG TOXICITY [None]
  - IMPRISONMENT [None]
  - PSYCHOTIC DISORDER [None]
